FAERS Safety Report 6186070-1 (Version None)
Quarter: 2009Q2

REPORT INFORMATION
  Report Type: 
  Country: None (occurrence: None)
  Receive Date: 20090507
  Receipt Date: 20090507
  Transmission Date: 20091009
  Serious: Yes (Other)
  Sender: FDA-Public Use
  Company Number: None

PATIENT
  Age: 61 Year
  Sex: Female
  Weight: 61.2356 kg

DRUGS (2)
  1. BACTRIM [Suspect]
     Indication: INFECTION
     Dosage: 3 TIMES A DAY PO
     Route: 048
  2. CARTIA XT [Suspect]
     Indication: CARDIAC DISORDER
     Dosage: 120 MG 2 TIMES A DAY

REACTIONS (2)
  - PRODUCT SUBSTITUTION ISSUE [None]
  - REACTION TO DRUG EXCIPIENTS [None]
